FAERS Safety Report 4502375-1 (Version None)
Quarter: 2004Q4

REPORT INFORMATION
  Report Type: 
  Country: None (occurrence: None)
  Receive Date: 20041116
  Receipt Date: 20040907
  Transmission Date: 20050328
  Serious: Yes (Other)
  Sender: FDA-Public Use
  Company Number: PHBS2004JP11943

PATIENT
  Age: 58 Year
  Sex: Male
  Weight: 61 kg

DRUGS (10)
  1. LOCHOL [Suspect]
     Indication: HYPERLIPIDAEMIA
     Dosage: 20 MG, QD
     Route: 048
     Dates: start: 20031110, end: 20040916
  2. LOCHOL [Suspect]
     Dosage: 10 MG/DAY
     Route: 048
     Dates: start: 20040917, end: 20041001
  3. NATEGLINIDE [Concomitant]
     Indication: DIABETIC NEPHROPATHY
     Dosage: 360 MG/DAY
     Route: 048
     Dates: start: 20040305
  4. GLUCOBAY [Concomitant]
     Indication: DIABETIC NEPHROPATHY
     Dosage: 150 MG/DAY
     Route: 048
     Dates: start: 20040710
  5. MICARDIS [Concomitant]
     Indication: HYPERTENSION
     Route: 048
     Dates: start: 20031001, end: 20040701
  6. NOVAROK [Concomitant]
     Indication: HYPERTENSION
     Route: 048
     Dates: start: 20040701
  7. TANATRIL [Suspect]
     Indication: DIABETIC NEPHROPATHY
     Dosage: 10 MG, QD
     Route: 048
     Dates: start: 20040612, end: 20041015
  8. CYANOCOBALAMIN [Concomitant]
     Indication: NEUROPATHY PERIPHERAL
     Dosage: 1500 UG, UNK
     Route: 048
     Dates: start: 20031111
  9. ADALAT CC [Concomitant]
     Indication: HYPERTENSION
     Dosage: 40 MG, UNK
     Route: 048
     Dates: start: 20040710
  10. OLMETEC [Suspect]
     Indication: DIABETIC NEPHROPATHY
     Dosage: 20 MG/DAY
     Route: 048
     Dates: start: 20040904, end: 20041015

REACTIONS (6)
  - BLOOD CREATINE PHOSPHOKINASE INCREASED [None]
  - BLOOD CREATINE PHOSPHOKINASE MB INCREASED [None]
  - BLOOD CREATININE INCREASED [None]
  - MYOGLOBIN BLOOD INCREASED [None]
  - MYOGLOBIN URINE PRESENT [None]
  - PAIN IN EXTREMITY [None]
